FAERS Safety Report 16436790 (Version 1)
Quarter: 2019Q2

REPORT INFORMATION
  Report Type: Spontaneous
  Country: NZ (occurrence: NZ)
  Receive Date: 20190614
  Receipt Date: 20190614
  Transmission Date: 20190711
  Serious: Yes (Death)
  Sender: FDA-Public Use
  Company Number: NZ-009507513-1906NZL004494

PATIENT
  Age: 40 Year
  Sex: Female

DRUGS (3)
  1. GONADOTROPIN, CHORIONIC [Suspect]
     Active Substance: CHORIOGONADOTROPIN ALFA
     Indication: PRODUCT USED FOR UNKNOWN INDICATION
     Dosage: UNK
  2. MENOTROPINS [Suspect]
     Active Substance: MENOTROPINS
     Indication: PRODUCT USED FOR UNKNOWN INDICATION
     Dosage: UNK
  3. BUSERELIN [Concomitant]
     Active Substance: BUSERELIN
     Indication: PRODUCT USED FOR UNKNOWN INDICATION

REACTIONS (5)
  - Cerebral infarction [Fatal]
  - Cyst [Fatal]
  - Ovarian hyperstimulation syndrome [Fatal]
  - Thrombosis [Fatal]
  - Pleural effusion [Fatal]

NARRATIVE: CASE EVENT DATE: 200805
